FAERS Safety Report 7541603-5 (Version None)
Quarter: 2011Q2

REPORT INFORMATION
  Report Type: 
  Country: None (occurrence: None)
  Receive Date: 20110613
  Receipt Date: 20110606
  Transmission Date: 20111010
  Serious: Yes (Death, Other)
  Sender: FDA-Public Use
  Company Number: US-ELI_LILLY_AND_COMPANY-US201106001840

PATIENT
  Age: 69 Year
  Sex: Female

DRUGS (5)
  1. NAPROSYN [Concomitant]
  2. PROTONIX [Concomitant]
  3. ZYPREXA [Suspect]
     Dosage: 2.5 MG, UNK
  4. REGLAN [Concomitant]
  5. TYLENOL (CAPLET) [Concomitant]

REACTIONS (4)
  - SYNCOPE [None]
  - HALLUCINATION [None]
  - HYPOTENSION [None]
  - DEATH [None]
